FAERS Safety Report 8763928 (Version 1)
Quarter: 2012Q4

REPORT INFORMATION
  Report Type: 
  Country: US (occurrence: US)
  Receive Date: 20120830
  Receipt Date: 20120830
  Transmission Date: 20130627
  Serious: Yes (Other)
  Sender: FDA-Public Use
  Company Number: US-BAYER-2012-089893

PATIENT
  Age: 66 Year
  Sex: Male
  Weight: 99.77 kg

DRUGS (2)
  1. BAYER ADVANCED ASPIRIN EXTRA STRENGTH [Suspect]
     Indication: ANALGESIC THERAPY
     Dosage: 2 DF, ONCE, bottle count 80s
     Route: 048
     Dates: start: 20120825, end: 20120825
  2. DIOVAN [Concomitant]

REACTIONS (5)
  - Throat irritation [Recovered/Resolved]
  - Oropharyngeal pain [Recovered/Resolved]
  - Cough [Recovered/Resolved]
  - Mucosal exfoliation [Recovered/Resolved]
  - Chemical burn of gastrointestinal tract [Not Recovered/Not Resolved]
